FAERS Safety Report 9310553 (Version 2)
Quarter: 2013Q2

REPORT INFORMATION
  Report Type: Spontaneous
  Country: US (occurrence: US)
  Receive Date: 20130527
  Receipt Date: 20130614
  Transmission Date: 20140414
  Serious: No
  Sender: FDA-Public Use
  Company Number: US-PFIZER INC-2013160300

PATIENT
  Age: 58 Year
  Sex: Male

DRUGS (8)
  1. LYRICA [Suspect]
     Dosage: 150MG IN THE MORNING 300MG HS (AT NIGHT)
     Route: 048
     Dates: start: 201205
  2. ROXICODONE [Concomitant]
     Dosage: UNK
  3. ZOLOFT [Concomitant]
     Dosage: UNK
  4. TOPROL XL [Concomitant]
     Dosage: UNK
  5. LOPID [Concomitant]
     Dosage: UNK
  6. ZOCOR [Concomitant]
     Dosage: UNK
  7. COUMADIN [Concomitant]
     Dosage: UNK
  8. OXYCONTIN [Concomitant]
     Dosage: UNK

REACTIONS (1)
  - Pain [Unknown]
